FAERS Safety Report 21907668 (Version 1)
Quarter: 2023Q1

REPORT INFORMATION
  Report Type: Spontaneous
  Country: IT (occurrence: IT)
  Receive Date: 20230125
  Receipt Date: 20230125
  Transmission Date: 20230418
  Serious: Yes (Death, Life-Threatening, Hospitalization, Other)
  Sender: FDA-Public Use
  Company Number: IT-MLMSERVICE-20230109-4029522-1

PATIENT
  Age: 80 Year
  Sex: Male

DRUGS (5)
  1. DILTIAZEM [Suspect]
     Active Substance: DILTIAZEM
     Indication: Cardiotoxicity
     Route: 048
  2. PEMBROLIZUMAB [Suspect]
     Active Substance: PEMBROLIZUMAB
     Indication: Nodular melanoma
  3. METHYLPREDNISOLONE [Concomitant]
     Active Substance: METHYLPREDNISOLONE
     Indication: Cardiotoxicity
     Route: 042
  4. PYRIDOSTIGMINE [Concomitant]
     Active Substance: PYRIDOSTIGMINE
     Indication: Cardiotoxicity
  5. OXYGEN [Concomitant]
     Active Substance: OXYGEN
     Indication: Cardiotoxicity
     Dosage: LOW FLOW

REACTIONS (1)
  - Atrioventricular block complete [Fatal]
